FAERS Safety Report 4536709-9 (Version None)
Quarter: 2004Q4

REPORT INFORMATION
  Report Type: 
  Country: None (occurrence: None)
  Receive Date: 20041222
  Receipt Date: 20041222
  Transmission Date: 20050328
  Serious: Yes (Hospitalization)
  Sender: FDA-Public Use
  Company Number: None

PATIENT
  Age: 44 Year
  Sex: Female

DRUGS (6)
  1. AMOXICILLIN [Suspect]
     Indication: CELLULITIS
     Dosage: PO - DOSE AND FREQ UNKNOWN
     Route: 048
  2. PHENERGAN [Concomitant]
  3. PREDNISONE [Concomitant]
  4. ATARAX [Concomitant]
  5. PRILOSEC [Concomitant]
  6. BIRTH CONTROL PILLS [Concomitant]

REACTIONS (2)
  - ARTHRALGIA [None]
  - HYPERSENSITIVITY [None]
